FAERS Safety Report 16797733 (Version 2)
Quarter: 2019Q3

REPORT INFORMATION
  Report Type: Spontaneous
  Country: ES (occurrence: ES)
  Receive Date: 20190912
  Receipt Date: 20190924
  Transmission Date: 20191005
  Serious: Yes (Other)
  Sender: FDA-Public Use
  Company Number: ES-TEVA-2019-ES-1105624

PATIENT
  Age: 52 Year
  Sex: Male

DRUGS (2)
  1. CICLOSPORINA (406A) [Interacting]
     Active Substance: CYCLOSPORINE
     Route: 048
     Dates: start: 20190315
  2. OMEPRAZOL (2141A) [Suspect]
     Active Substance: OMEPRAZOLE
     Dosage: 20 MILLIGRAM DAILY; 20 MG A DAY
     Route: 048
     Dates: start: 20190607, end: 20190618

REACTIONS (2)
  - Drug interaction [Recovered/Resolved]
  - Immunosuppressant drug level increased [Recovered/Resolved]

NARRATIVE: CASE EVENT DATE: 20190607
